FAERS Safety Report 17683974 (Version 1)
Quarter: 2020Q2

REPORT INFORMATION
  Report Type: Report from Study
  Country: NL (occurrence: NL)
  Receive Date: 20200420
  Receipt Date: 20200420
  Transmission Date: 20200714
  Serious: Yes (Hospitalization)
  Sender: FDA-Public Use
  Company Number: NL-ROCHE-2580343

PATIENT
  Age: 63 Year
  Sex: Male

DRUGS (4)
  1. FOLINIC ACID [Suspect]
     Active Substance: LEUCOVORIN
     Indication: COLORECTAL CANCER METASTATIC
     Dosage: ON DAY 1 FOR 6 TWO-WEEK CYCLES
     Route: 042
     Dates: start: 20191129
  2. IRINOTECAN [Suspect]
     Active Substance: IRINOTECAN
     Indication: COLORECTAL CANCER METASTATIC
     Dosage: ON DAY 1 FOR 6 TWO-WEEK CYCLES
     Route: 042
     Dates: start: 20191129
  3. FLUOROURACIL. [Suspect]
     Active Substance: FLUOROURACIL
     Indication: COLORECTAL CANCER METASTATIC
     Dosage: 400/2400 MG/M2 OF BOLUS/CONTINUOUS FLUOROURACIL?ON DAY 1-2 FOR 6 TWO-WEEK CYCLES
     Route: 042
     Dates: start: 20191129
  4. BEVACIZUMAB. [Suspect]
     Active Substance: BEVACIZUMAB
     Indication: COLORECTAL CANCER METASTATIC
     Dosage: ON DAY 1 FOR FIRST 4 OF 6 (TWO-WEEK) CYCLES
     Route: 042
     Dates: start: 20191129

REACTIONS (5)
  - Abdominal pain [Recovering/Resolving]
  - Pyrexia [Recovering/Resolving]
  - Wound dehiscence [Recovering/Resolving]
  - Hypophagia [Recovering/Resolving]
  - Pelvic abscess [Recovering/Resolving]

NARRATIVE: CASE EVENT DATE: 20200404
